FAERS Safety Report 7915601-3 (Version None)
Quarter: 2011Q4

REPORT INFORMATION
  Report Type: 
  Country: None (occurrence: None)
  Receive Date: 20111115
  Receipt Date: 20110714
  Transmission Date: 20120403
  Serious: Yes (Other)
  Sender: FDA-Public Use
  Company Number: US-BRISTOL-MYERS SQUIBB COMPANY-15864168

PATIENT
  Age: 80 Year
  Sex: Female

DRUGS (2)
  1. YERVOY [Suspect]
     Dosage: 2 DOSES
     Dates: start: 20110527
  2. OXYCONTIN [Suspect]

REACTIONS (2)
  - DIARRHOEA [None]
  - PERIPHERAL MOTOR NEUROPATHY [None]
